FAERS Safety Report 15653872 (Version 1)
Quarter: 2018Q4

REPORT INFORMATION
  Report Type: Spontaneous
  Country: US (occurrence: US)
  Receive Date: 20181124
  Receipt Date: 20181124
  Transmission Date: 20190205
  Serious: Yes (Hospitalization)
  Sender: FDA-Public Use
  Company Number: None

PATIENT
  Age: 63 Year
  Sex: Female
  Weight: 80.55 kg

DRUGS (2)
  1. MELOXICAM 7.5MG TABLETS [Suspect]
     Active Substance: MELOXICAM
     Indication: INFLAMMATION
     Dosage: ?          QUANTITY:1 TABLET(S);?
     Route: 048
     Dates: start: 20181113, end: 20181113
  2. MELOXICAM 7.5MG TABLETS [Suspect]
     Active Substance: MELOXICAM
     Indication: SPINAL OSTEOARTHRITIS
     Dosage: ?          QUANTITY:1 TABLET(S);?
     Route: 048
     Dates: start: 20181113, end: 20181113

REACTIONS (3)
  - Dizziness [None]
  - Blood pressure increased [None]
  - Asthenia [None]

NARRATIVE: CASE EVENT DATE: 20181113
